FAERS Safety Report 5990852-6 (Version None)
Quarter: 2008Q4

REPORT INFORMATION
  Report Type: 
  Country: None (occurrence: None)
  Receive Date: 20081211
  Receipt Date: 20081203
  Transmission Date: 20090506
  Serious: Yes (Other)
  Sender: FDA-Public Use
  Company Number: JP-ASTRAZENECA-2008AP09381

PATIENT
  Age: 30 Year
  Sex: Female
  Weight: 51 kg

DRUGS (11)
  1. ANAPEINE INJECTION 10MG/ML [Suspect]
     Indication: EPIDURAL ANAESTHESIA
     Route: 008
     Dates: start: 20081117, end: 20081117
  2. XYLOCAINE INJECTION SYRINGE 1% [Concomitant]
     Indication: EPIDURAL ANAESTHESIA
     Route: 008
     Dates: start: 20081117, end: 20081117
  3. SEVOFLURANE [Concomitant]
     Indication: GENERAL ANAESTHESIA
     Dosage: 0.4%
     Route: 055
     Dates: start: 20081117, end: 20081117
  4. MIDAZOLAM HCL [Concomitant]
     Indication: GENERAL ANAESTHESIA
     Route: 042
     Dates: start: 20081117, end: 20081117
  5. ISOZOL [Concomitant]
     Indication: GENERAL ANAESTHESIA
     Route: 042
     Dates: start: 20081117, end: 20081117
  6. FENTANYL-100 [Concomitant]
     Indication: GENERAL ANAESTHESIA
     Route: 042
     Dates: start: 20081117, end: 20081117
  7. FLUMAZENIL [Concomitant]
     Indication: GENERAL ANAESTHESIA
     Route: 042
     Dates: start: 20081117, end: 20081117
  8. NALOXONE HYDROCHLORIDE [Concomitant]
     Indication: GENERAL ANAESTHESIA
     Route: 042
     Dates: start: 20081117, end: 20081117
  9. MUSCURATE [Concomitant]
     Indication: GENERAL ANAESTHESIA
     Route: 042
     Dates: start: 20081117, end: 20081117
  10. ATROPINE [Concomitant]
     Indication: GENERAL ANAESTHESIA
     Route: 042
     Dates: start: 20081117, end: 20081117
  11. VAGOSTIGMIN [Concomitant]
     Indication: GENERAL ANAESTHESIA
     Route: 042
     Dates: start: 20081117, end: 20081117

REACTIONS (1)
  - ANAESTHETIC COMPLICATION [None]
